FAERS Safety Report 9451989 (Version 2)
Quarter: 2013Q3

REPORT INFORMATION
  Report Type: Spontaneous
  Country: US (occurrence: US)
  Receive Date: 20130812
  Receipt Date: 20130917
  Transmission Date: 20140515
  Serious: No
  Sender: FDA-Public Use
  Company Number: US-009507513-1308USA002428

PATIENT
  Sex: Male
  Weight: 87.98 kg

DRUGS (1)
  1. ZOCOR [Suspect]
     Dosage: UNK

REACTIONS (2)
  - Rash generalised [Recovered/Resolved]
  - Pruritus generalised [Unknown]
